FAERS Safety Report 4784798-9 (Version None)
Quarter: 2005Q3

REPORT INFORMATION
  Report Type: 
  Country: None (occurrence: None)
  Receive Date: 20050928
  Receipt Date: 20050915
  Transmission Date: 20060218
  Serious: Yes (Death, Other)
  Sender: FDA-Public Use
  Company Number: 2005109698

PATIENT
  Sex: Female

DRUGS (1)
  1. HALCION [Suspect]
     Indication: ILL-DEFINED DISORDER

REACTIONS (3)
  - DRUG TOXICITY [None]
  - IATROGENIC INJURY [None]
  - OVERDOSE [None]
